FAERS Safety Report 5780983-8 (Version None)
Quarter: 2008Q2

REPORT INFORMATION
  Report Type: 
  Country: None (occurrence: None)
  Receive Date: 20080618
  Receipt Date: 20080605
  Transmission Date: 20081010
  Serious: Yes (Death)
  Sender: FDA-Public Use
  Company Number: 2008AL004701

PATIENT
  Age: 79 Year
  Sex: Male

DRUGS (5)
  1. DIGOXIN [Suspect]
     Indication: CARDIAC DISORDER
     Dosage: 0.25MG DAILY PO OVER 3 YEARS
     Route: 048
  2. ZOCOR [Concomitant]
  3. NAMENDA [Concomitant]
  4. ARICEPT [Concomitant]
  5. BENICAR [Concomitant]

REACTIONS (2)
  - PNEUMONIA [None]
  - SEPSIS [None]
